FAERS Safety Report 7305239-3 (Version None)
Quarter: 2011Q1

REPORT INFORMATION
  Report Type: 
  Country: None (occurrence: None)
  Receive Date: 20110222
  Receipt Date: 20110215
  Transmission Date: 20110831
  Serious: Yes (Hospitalization, Other)
  Sender: FDA-Public Use
  Company Number: JP-PFIZER INC-2011008237

PATIENT
  Age: 69 Year
  Sex: Female

DRUGS (5)
  1. CELECOXIB [Concomitant]
     Indication: PAIN
     Dosage: UNK
     Route: 048
     Dates: start: 20100101
  2. LYRICA [Suspect]
     Indication: NEURALGIA
     Dosage: 75 MG/DAY
     Route: 048
     Dates: start: 20101218, end: 20101228
  3. ALINAMIN F [Concomitant]
     Dosage: UNK
     Route: 048
     Dates: start: 20100101
  4. NEUROTROPIN [Concomitant]
     Indication: NEURALGIA
     Dosage: UNK
     Route: 048
     Dates: start: 20100101
  5. LYRICA [Suspect]
     Dosage: 150 MG/DAY
     Route: 048
     Dates: start: 20101228, end: 20110109

REACTIONS (3)
  - RHEUMATOID ARTHRITIS [None]
  - OEDEMA PERIPHERAL [None]
  - CARDIAC DISORDER [None]
